FAERS Safety Report 8597672-7 (Version None)
Quarter: 2012Q3

REPORT INFORMATION
  Report Type: 
  Country: None (occurrence: None)
  Receive Date: 20120816
  Receipt Date: 20120810
  Transmission Date: 20120928
  Serious: Yes (Hospitalization)
  Sender: FDA-Public Use
  Company Number: US-PFIZER INC-2012195882

PATIENT
  Age: 61 Year
  Sex: Female
  Weight: 116 kg

DRUGS (1)
  1. SOMAVERT [Suspect]
     Indication: ACROMEGALY
     Dosage: 200 UNITS, FREQUENCY UNKNOWN
     Dates: start: 20090101

REACTIONS (1)
  - CEREBROVASCULAR ACCIDENT [None]
